FAERS Safety Report 21922819 (Version 1)
Quarter: 2023Q1

REPORT INFORMATION
  Report Type: Spontaneous
  Country: US (occurrence: US)
  Receive Date: 20230128
  Receipt Date: 20230128
  Transmission Date: 20230418
  Serious: No
  Sender: FDA-Public Use
  Company Number: US-drreddys-SPO/USA/23/0159603

PATIENT
  Age: 72 Year
  Sex: Male

DRUGS (15)
  1. LENALIDOMIDE [Suspect]
     Active Substance: LENALIDOMIDE
     Indication: Plasma cell myeloma
     Dosage: TAKE 1 CAPSULE BY MOUTH DAILY, TAKE WHOLE WITH WATER, W OR W/OUT FOOD
     Route: 048
     Dates: start: 20221026
  2. AMLODIPINE BESYLATE [Concomitant]
     Active Substance: AMLODIPINE BESYLATE
     Indication: Product used for unknown indication
  3. ACYCLOVIR [Concomitant]
     Active Substance: ACYCLOVIR
     Indication: Product used for unknown indication
  4. LANTUS SOLOS SOP [Concomitant]
     Indication: Product used for unknown indication
  5. MULTIVITAMIN TAB [Concomitant]
     Indication: Product used for unknown indication
  6. ALLOPURINOL POW [Concomitant]
     Indication: Product used for unknown indication
  7. CALCITRIOL CAP [Concomitant]
     Indication: Product used for unknown indication
  8. FUROSEMIDE TAB [Concomitant]
     Indication: Product used for unknown indication
  9. JARDIANCE TAB [Concomitant]
     Indication: Product used for unknown indication
  10. LOSARTAN POTASSIUM [Concomitant]
     Active Substance: LOSARTAN POTASSIUM
     Indication: Product used for unknown indication
  11. PANTOPRAZOLE TBE [Concomitant]
     Indication: Product used for unknown indication
  12. ROSUVASTAT [Concomitant]
     Indication: Product used for unknown indication
  13. SOTALOL [Concomitant]
     Active Substance: SOTALOL
     Indication: Product used for unknown indication
  14. XARELTO TAB [Concomitant]
     Indication: Product used for unknown indication
  15. DEXAMETHASON TAB [Concomitant]
     Indication: Product used for unknown indication

REACTIONS (1)
  - Treatment noncompliance [Unknown]
